FAERS Safety Report 20161818 (Version 1)
Quarter: 2021Q4

REPORT INFORMATION
  Report Type: Spontaneous
  Country: DE (occurrence: DE)
  Receive Date: 20211208
  Receipt Date: 20211208
  Transmission Date: 20220303
  Serious: Yes (Disabling)
  Sender: FDA-Public Use
  Company Number: None

PATIENT
  Age: 70 Year
  Sex: Male
  Weight: 80 kg

DRUGS (1)
  1. ATORVASTATIN [Suspect]
     Active Substance: ATORVASTATIN
     Indication: Carotid arteriosclerosis
     Dosage: 80 MG, QW (2 SEPARATED DOSES)
     Route: 048
     Dates: start: 201907, end: 202103

REACTIONS (2)
  - Gait disturbance [Recovering/Resolving]
  - Tendon pain [Recovering/Resolving]

NARRATIVE: CASE EVENT DATE: 20200509
